FAERS Safety Report 12984182 (Version 3)
Quarter: 2018Q1

REPORT INFORMATION
  Report Type: Spontaneous
  Country: US (occurrence: US)
  Receive Date: 20161129
  Receipt Date: 20180316
  Transmission Date: 20180508
  Serious: Yes (Hospitalization, Disabling)
  Sender: FDA-Public Use
  Company Number: US-ENDO PHARMACEUTICALS INC.-2016-005468

PATIENT
  Age: 70 Year
  Sex: Male
  Weight: 78.01 kg

DRUGS (6)
  1. TESTIM [Suspect]
     Active Substance: TESTOSTERONE
     Indication: ANDROGEN REPLACEMENT THERAPY
     Dosage: 50 MG, DAILY
     Route: 062
     Dates: start: 20130810, end: 20130810
  2. TESTIM [Suspect]
     Active Substance: TESTOSTERONE
     Dosage: 50 MG, UNK
     Route: 062
     Dates: start: 20130109, end: 20130414
  3. TESTIM [Suspect]
     Active Substance: TESTOSTERONE
     Dosage: 50 MG, UNK
     Route: 062
     Dates: start: 20130311, end: 20130411
  4. ANDROGEL [Suspect]
     Active Substance: TESTOSTERONE
     Indication: ANDROGEN REPLACEMENT THERAPY
     Dosage: UNK UNKNOWN, DAILY
     Route: 065
     Dates: start: 20130311, end: 20130411
  5. ANDRODERM [Suspect]
     Active Substance: TESTOSTERONE
     Indication: ANDROGEN REPLACEMENT THERAPY
     Dosage: UNK UNKNOWN, DAILY
     Route: 065
     Dates: start: 20140408, end: 20140908
  6. TESTO PATCH [Suspect]
     Active Substance: TESTOSTERONE
     Indication: ANDROGEN REPLACEMENT THERAPY
     Dosage: UNK UNKNOWN, DAILY
     Route: 065
     Dates: start: 1997

REACTIONS (9)
  - Pneumonia [Unknown]
  - Pulmonary pneumatocele [Unknown]
  - Lung cyst [Unknown]
  - Pulmonary mass [Unknown]
  - Depression [Not Recovered/Not Resolved]
  - Compression fracture [Unknown]
  - Pulmonary embolism [Unknown]
  - Hepatic mass [Unknown]
  - Hypertension [Not Recovered/Not Resolved]

NARRATIVE: CASE EVENT DATE: 20140505
